FAERS Safety Report 6658753-8 (Version None)
Quarter: 2010Q1

REPORT INFORMATION
  Report Type: 
  Country: None (occurrence: None)
  Receive Date: 20100330
  Receipt Date: 20100323
  Transmission Date: 20100710
  Serious: Yes (Hospitalization, Other)
  Sender: FDA-Public Use
  Company Number: PHEH2010US03048

PATIENT
  Sex: Female

DRUGS (2)
  1. GLEEVEC [Suspect]
     Indication: CHRONIC MYELOID LEUKAEMIA
     Dosage: 400 MG, QD
     Route: 048
     Dates: start: 20070627
  2. BARIUM [Interacting]
     Dosage: UNK
     Dates: start: 20091201

REACTIONS (12)
  - ABDOMINAL ADHESIONS [None]
  - ABDOMINAL DISCOMFORT [None]
  - ABDOMINAL MASS [None]
  - COLECTOMY [None]
  - DESMOID TUMOUR [None]
  - DRUG INTERACTION [None]
  - GASTRECTOMY [None]
  - GASTRITIS [None]
  - LACRIMATION INCREASED [None]
  - LAPAROSCOPY [None]
  - MASS EXCISION [None]
  - NEOPLASM MALIGNANT [None]
